FAERS Safety Report 5775917-6 (Version None)
Quarter: 2008Q2

REPORT INFORMATION
  Report Type: 
  Country: None (occurrence: None)
  Receive Date: 20080617
  Receipt Date: 20080610
  Transmission Date: 20081010
  Serious: Yes (Other)
  Sender: FDA-Public Use
  Company Number: JP-PFIZER INC-2008049566

PATIENT
  Sex: Male
  Weight: 22 kg

DRUGS (1)
  1. GENOTROPIN [Suspect]
     Indication: HYPOPITUITARISM
     Dosage: DAILY DOSE:.6MG-FREQ:6INJECTIONS/WEEK
     Route: 058

REACTIONS (1)
  - LIVER DISORDER [None]
